FAERS Safety Report 14577895 (Version 17)
Quarter: 2020Q2

REPORT INFORMATION
  Report Type: Spontaneous
  Country: CA (occurrence: CA)
  Receive Date: 20180227
  Receipt Date: 20200605
  Transmission Date: 20200713
  Serious: Yes (Other)
  Sender: FDA-Public Use
  Company Number: CA-CELLTRION INC.-2017CA003254

PATIENT

DRUGS (29)
  1. INFLECTRA [Suspect]
     Active Substance: INFLIXIMAB-DYYB
     Dosage: 350 MG, EVERY 8 WEEKS
     Route: 042
     Dates: start: 20180711
  2. INFLECTRA [Suspect]
     Active Substance: INFLIXIMAB-DYYB
     Dosage: 700 MG AT 0, 2, 6 WEEKS, THEN EVERY 8 WEEKS
     Route: 042
     Dates: start: 20191217
  3. VITAMIN D [Concomitant]
     Active Substance: VITAMIN D NOS
     Dosage: 10000 IU, UNK
     Route: 065
  4. CALCIUM [Concomitant]
     Active Substance: CALCIUM
     Dosage: 1000 MG, UNK
     Route: 065
  5. INFLECTRA [Suspect]
     Active Substance: INFLIXIMAB-DYYB
     Dosage: 219 MG, EVERY 8 WEEKS
     Route: 042
     Dates: start: 20180111
  6. INFLECTRA [Suspect]
     Active Substance: INFLIXIMAB-DYYB
     Dosage: 219 MG, EVERY 8 WEEKS
     Route: 042
     Dates: start: 20180307
  7. CALCIUM [Concomitant]
     Active Substance: CALCIUM
     Dosage: 500 MG, UNK
     Route: 065
  8. METHYLPREDNISOLONE. [Concomitant]
     Active Substance: METHYLPREDNISOLONE
     Dosage: 100 MG, UNK
     Route: 042
     Dates: start: 20200407
  9. DIMENHYDRINATE. [Concomitant]
     Active Substance: DIMENHYDRINATE
     Dosage: 50 MG, UNK
     Route: 042
     Dates: start: 20200407
  10. INFLECTRA [Suspect]
     Active Substance: INFLIXIMAB-DYYB
     Dosage: 219 MG, EVERY 8 WEEKS
     Route: 042
     Dates: start: 20160616, end: 20180307
  11. INFLECTRA [Suspect]
     Active Substance: INFLIXIMAB-DYYB
     Dosage: 700 MG AT 0, 2, 6 WEEKS, THEN EVERY 8 WEEKS
     Route: 042
     Dates: start: 20191121
  12. INFLECTRA [Suspect]
     Active Substance: INFLIXIMAB-DYYB
     Dosage: 700 MG AT 0, 2, 6 WEEKS, THEN EVERY 8 WEEKS
     Route: 042
     Dates: start: 20200407
  13. INFLECTRA [Suspect]
     Active Substance: INFLIXIMAB-DYYB
     Dosage: 700 MG AT 0, 2, 6 WEEKS, THEN EVERY 8 WEEKS
     Route: 042
     Dates: start: 20200601
  14. PREDNISONE. [Concomitant]
     Active Substance: PREDNISONE
     Dosage: UNK
     Route: 048
     Dates: start: 20180313
  15. PLAQUENIL [Concomitant]
     Active Substance: HYDROXYCHLOROQUINE SULFATE
     Dosage: 200 MG, UNK
     Route: 065
  16. METHYLPREDNISOLONE. [Concomitant]
     Active Substance: METHYLPREDNISOLONE
     Indication: PREMEDICATION
     Dosage: 250 MG, UNK
     Route: 042
  17. INFLECTRA [Suspect]
     Active Substance: INFLIXIMAB-DYYB
     Indication: SARCOIDOSIS
     Dosage: 200 MG, EVERY 2, 6 WEEKS, THEN EVERY 8 WEEKS FOR 12  MONTHS
     Route: 042
     Dates: start: 20160616
  18. INFLECTRA [Suspect]
     Active Substance: INFLIXIMAB-DYYB
     Dosage: 350 MG, EVERY 8 WEEKS
     Route: 042
     Dates: start: 20180904, end: 201809
  19. INFLECTRA [Suspect]
     Active Substance: INFLIXIMAB-DYYB
     Dosage: 700 MG AT 0, 2, 6 WEEKS, THEN EVERY 8 WEEKS
     Route: 042
     Dates: start: 20191107
  20. METHOTREXATE. [Concomitant]
     Active Substance: METHOTREXATE
     Dosage: 25 MG, UNK
     Route: 065
  21. DIMENHYDRINATE. [Concomitant]
     Active Substance: DIMENHYDRINATE
     Indication: PREMEDICATION
     Dosage: 50 MG, UNK
     Route: 042
  22. INFLECTRA [Suspect]
     Active Substance: INFLIXIMAB-DYYB
     Dosage: 350 MG, EVERY 8 WEEKS
     Route: 042
     Dates: start: 20180518, end: 20180904
  23. INFLECTRA [Suspect]
     Active Substance: INFLIXIMAB-DYYB
     Dosage: 700 MG AT 0, 2, 6 WEEKS, THEN EVERY 8 WEEKS
     Route: 042
  24. PLAQUENIL [Concomitant]
     Active Substance: HYDROXYCHLOROQUINE SULFATE
     Dosage: 400 MG, UNK
  25. PREDNISONE. [Concomitant]
     Active Substance: PREDNISONE
     Dosage: UNK
     Route: 065
  26. PANTOLOC [Concomitant]
     Active Substance: PANTOPRAZOLE SODIUM
     Dosage: 4 MG, UNK
     Route: 065
  27. INFLECTRA [Suspect]
     Active Substance: INFLIXIMAB-DYYB
     Dosage: 700 MG AT 0, 2, 6 WEEKS, THEN EVERY 8 WEEKS
     Route: 042
     Dates: start: 20200210
  28. HYDROCORTISONE. [Concomitant]
     Active Substance: HYDROCORTISONE
     Indication: PREMEDICATION
     Dosage: 100 MG, UNK
     Route: 042
  29. FOLIC ACID. [Concomitant]
     Active Substance: FOLIC ACID
     Dosage: 5 MG, UNK
     Route: 065

REACTIONS (23)
  - Off label use [Unknown]
  - Therapeutic product effect decreased [Unknown]
  - Skin laceration [Unknown]
  - Rash [Unknown]
  - Inappropriate schedule of product administration [Unknown]
  - Flushing [Unknown]
  - Peripheral coldness [Unknown]
  - Dry skin [Recovered/Resolved]
  - Pneumonia [Unknown]
  - Heart rate irregular [Unknown]
  - Impaired healing [Recovered/Resolved]
  - Erythema [Recovered/Resolved]
  - Treatment failure [Unknown]
  - Chills [Unknown]
  - Weight decreased [Unknown]
  - Weight increased [Unknown]
  - Product use in unapproved indication [Unknown]
  - Blood pressure fluctuation [Unknown]
  - Dizziness [Unknown]
  - Vomiting [Unknown]
  - Body temperature decreased [Unknown]
  - Dyspnoea [Unknown]
  - Asthma [Unknown]

NARRATIVE: CASE EVENT DATE: 20160616
